FAERS Safety Report 11730814 (Version 1)
Quarter: 2015Q4

REPORT INFORMATION
  Report Type: Spontaneous
  Country: US (occurrence: US)
  Receive Date: 20151110
  Receipt Date: 20151110
  Transmission Date: 20160304
  Serious: No
  Sender: FDA-Public Use
  Company Number: US-ELI_LILLY_AND_COMPANY-US201201001836

PATIENT
  Age: 79 Year
  Sex: Female

DRUGS (1)
  1. FORTEO [Suspect]
     Active Substance: TERIPARATIDE
     Indication: OSTEOPOROSIS
     Dosage: 20 UG, QD
     Route: 058
     Dates: start: 20111211, end: 20111229

REACTIONS (6)
  - Vomiting [Unknown]
  - Abdominal discomfort [Recovered/Resolved]
  - Depressed mood [Unknown]
  - Fatigue [Recovering/Resolving]
  - Somnolence [Unknown]
  - Pain in jaw [Recovering/Resolving]

NARRATIVE: CASE EVENT DATE: 201112
